FAERS Safety Report 9028568 (Version 6)
Quarter: 2015Q3

REPORT INFORMATION
  Report Type: Spontaneous
  Country: US (occurrence: US)
  Receive Date: 20130124
  Receipt Date: 20150814
  Transmission Date: 20151125
  Serious: Yes (Hospitalization, Other)
  Sender: FDA-Public Use
  Company Number: US-GLAXOSMITHKLINE-A1009393A

PATIENT
  Sex: Female

DRUGS (5)
  1. FLOLAN [Suspect]
     Active Substance: EPOPROSTENOL SODIUM
     Dosage: UNK
  2. FLOLAN [Suspect]
     Active Substance: EPOPROSTENOL SODIUM
     Dosage: 39 NG/KG/MIN CONTINUOUSLY
  3. FLOLAN [Suspect]
     Active Substance: EPOPROSTENOL SODIUM
     Indication: PULMONARY ARTERIAL HYPERTENSION
     Dosage: 39 NG/KG/MIN CONTINUOUSLY (CONCENTRATION 60,000 NG/ML; 1.5 MG VIAL STRENGTH)
     Route: 042
     Dates: start: 20020826
  4. FLOLAN [Suspect]
     Active Substance: EPOPROSTENOL SODIUM
     Dosage: UNK
     Dates: start: 20020826
  5. FLOLAN [Suspect]
     Active Substance: EPOPROSTENOL SODIUM
     Dosage: UNK
     Dates: start: 20020826

REACTIONS (9)
  - Central venous catheterisation [Unknown]
  - Cough [Unknown]
  - Pulmonary arterial pressure increased [Unknown]
  - Sinusitis [Unknown]
  - Medical device complication [Unknown]
  - Nasopharyngitis [Unknown]
  - Sinus disorder [Unknown]
  - Dyspnoea [Unknown]
  - Dizziness [Unknown]
